FAERS Safety Report 4475328-X (Version None)
Quarter: 2004Q4

REPORT INFORMATION
  Report Type: 
  Country: None (occurrence: None)
  Receive Date: 20041015
  Receipt Date: 20041006
  Transmission Date: 20050328
  Serious: Yes (Death, Other)
  Sender: FDA-Public Use
  Company Number: 200417639US

PATIENT
  Sex: Female

DRUGS (3)
  1. LOVENOX [Suspect]
     Indication: CHOLECYSTECTOMY
     Dosage: DOSE: UNK
  2. LOVENOX [Suspect]
     Indication: LAPAROSCOPIC SURGERY
     Dosage: DOSE: UNK
  3. LOVENOX [Suspect]
     Indication: POSTOPERATIVE CARE
     Dosage: DOSE: UNK

REACTIONS (4)
  - CARDIO-RESPIRATORY ARREST [None]
  - HAEMATOCRIT DECREASED [None]
  - MENTAL STATUS CHANGES [None]
  - POST PROCEDURAL COMPLICATION [None]
